FAERS Safety Report 16287729 (Version 1)
Quarter: 2019Q2

REPORT INFORMATION
  Report Type: Spontaneous
  Country: US (occurrence: US)
  Receive Date: 20190508
  Receipt Date: 20190508
  Transmission Date: 20190711
  Serious: Yes (Other)
  Sender: FDA-Public Use
  Company Number: US-PFIZER INC-2019195203

PATIENT
  Age: 65 Year
  Sex: Female

DRUGS (3)
  1. TECHNETIUM TC 99M EXAMETAZIME [Suspect]
     Active Substance: TECHNETIUM TC-99M EXAMETAZIME
     Dosage: UNK
  2. VANCOMYCIN HCL [Suspect]
     Active Substance: VANCOMYCIN HYDROCHLORIDE
     Dosage: UNK
  3. IODINE. [Suspect]
     Active Substance: IODINE
     Dosage: UNK

REACTIONS (2)
  - Anaphylactic reaction [Unknown]
  - Drug hypersensitivity [Unknown]
